FAERS Safety Report 17860582 (Version 3)
Quarter: 2021Q2

REPORT INFORMATION
  Report Type: Spontaneous
  Country: US (occurrence: US)
  Receive Date: 20200604
  Receipt Date: 20210604
  Transmission Date: 20210717
  Serious: No
  Sender: FDA-Public Use
  Company Number: US-SA-2020SA142031

PATIENT
  Age: 60 Year
  Sex: Female

DRUGS (1)
  1. DUPIXENT [Suspect]
     Active Substance: DUPILUMAB
     Indication: ASTHMA
     Dosage: 200 MG (FREQUENCY?INJECT ONE SYRINGE)
     Route: 058
     Dates: start: 20191102

REACTIONS (3)
  - Hypersensitivity [Unknown]
  - Product dose omission issue [Unknown]
  - Malaise [Unknown]
